FAERS Safety Report 22344742 (Version 5)
Quarter: 2024Q2

REPORT INFORMATION
  Report Type: Report from Study
  Country: US (occurrence: US)
  Receive Date: 20230519
  Receipt Date: 20240420
  Transmission Date: 20240716
  Serious: Yes (Other)
  Sender: FDA-Public Use
  Company Number: US-JAZZ PHARMACEUTICALS-2022-US-035639

PATIENT
  Age: 49 Year
  Sex: Male

DRUGS (17)
  1. XYWAV [Suspect]
     Active Substance: CALCIUM OXYBATE\MAGNESIUM OXYBATE\POTASSIUM OXYBATE\SODIUM OXYBATE
     Indication: Hypersomnia
     Dosage: 5.5 GRAM
  2. XYWAV [Suspect]
     Active Substance: CALCIUM OXYBATE\MAGNESIUM OXYBATE\POTASSIUM OXYBATE\SODIUM OXYBATE
     Dosage: 6 GRAM
  3. XYWAV [Suspect]
     Active Substance: CALCIUM OXYBATE\MAGNESIUM OXYBATE\POTASSIUM OXYBATE\SODIUM OXYBATE
     Dosage: 5 GRAM, QD ( 5 GRAMS 5 MINUTES BEFORE BEDTIME)
  4. XYWAV [Suspect]
     Active Substance: CALCIUM OXYBATE\MAGNESIUM OXYBATE\POTASSIUM OXYBATE\SODIUM OXYBATE
     Dosage: UNK
     Dates: start: 20220921
  5. METHYLPHENIDATE [Concomitant]
     Active Substance: METHYLPHENIDATE
     Indication: Product used for unknown indication
     Dosage: 10 MILLIGRAM
     Dates: start: 20200808
  6. MODAFINIL [Concomitant]
     Active Substance: MODAFINIL
     Indication: Product used for unknown indication
     Dosage: 200 MILLIGRAM
     Dates: start: 20200208
  7. LEVOTHYROXINE [Concomitant]
     Active Substance: LEVOTHYROXINE\LEVOTHYROXINE SODIUM
     Indication: Product used for unknown indication
     Dosage: 100 MICROGRAM
     Dates: start: 20200808
  8. ANASTROZOLE [Concomitant]
     Active Substance: ANASTROZOLE
     Indication: Product used for unknown indication
     Dosage: 1 MILLIGRAM
     Dates: start: 20210208
  9. TELMISARTAN [Concomitant]
     Active Substance: TELMISARTAN
     Indication: Product used for unknown indication
     Dosage: 40 MILLIGRAM
     Dates: start: 20210808
  10. PANTOPRAZOLE [Concomitant]
     Active Substance: PANTOPRAZOLE
     Indication: Product used for unknown indication
     Dosage: 40 MILLIGRAM
     Dates: start: 20210808
  11. CLOMIPHENE CITRATE [Concomitant]
     Active Substance: CLOMIPHENE CITRATE
     Indication: Product used for unknown indication
     Dosage: 50 MILLIGRAM
     Dates: start: 20210208
  12. KETOCONAZOLE [Concomitant]
     Active Substance: KETOCONAZOLE
     Indication: Product used for unknown indication
     Dosage: 0000
     Dates: start: 20170808
  13. TACROLIMUS [Concomitant]
     Active Substance: TACROLIMUS
     Indication: Product used for unknown indication
     Dosage: 0000
     Dates: start: 20190808
  14. VITAMINS [Concomitant]
     Active Substance: VITAMINS
     Indication: Product used for unknown indication
     Dosage: 0000
     Dates: start: 20190808
  15. TESTOSTERONE CYPIONATE [Concomitant]
     Active Substance: TESTOSTERONE CYPIONATE
     Indication: Product used for unknown indication
     Dosage: UNK
     Dates: start: 20230128
  16. ACETAMINOPHEN\OXYCODONE HYDROCHLORIDE [Concomitant]
     Active Substance: ACETAMINOPHEN\OXYCODONE HYDROCHLORIDE
     Indication: Product used for unknown indication
     Dosage: UNK
  17. METFORMIN HYDROCHLORIDE [Concomitant]
     Active Substance: METFORMIN HYDROCHLORIDE
     Indication: Product used for unknown indication
     Dosage: UNK
     Dates: start: 20240113

REACTIONS (8)
  - Knee operation [Unknown]
  - Diabetes mellitus [Unknown]
  - Precancerous skin lesion [Unknown]
  - Blood cholesterol increased [Unknown]
  - Tooth disorder [Unknown]
  - Conjunctivitis [Unknown]
  - Sinusitis [Unknown]
  - Somnolence [Unknown]

NARRATIVE: CASE EVENT DATE: 20230201
